FAERS Safety Report 19278341 (Version 4)
Quarter: 2023Q1

REPORT INFORMATION
  Report Type: Report from Study
  Country: US (occurrence: US)
  Receive Date: 20210520
  Receipt Date: 20230207
  Transmission Date: 20230418
  Serious: Yes (Hospitalization, Other)
  Sender: FDA-Public Use
  Company Number: US-TAKEDA-US202030658

PATIENT
  Sex: Female

DRUGS (1)
  1. HUMAN IMMUNOGLOBULIN G [Suspect]
     Active Substance: HUMAN IMMUNOGLOBULIN G
     Indication: Hypogammaglobulinaemia
     Dosage: UNK
     Route: 058

REACTIONS (17)
  - Colitis ulcerative [Unknown]
  - Abdominal infection [Unknown]
  - Abscess [Unknown]
  - Autoimmune disorder [Unknown]
  - Gastrointestinal anastomotic leak [Unknown]
  - Anaemia [Unknown]
  - Foot fracture [Unknown]
  - Arthritis [Unknown]
  - Infusion site rash [Unknown]
  - Fall [Unknown]
  - Multiple allergies [Unknown]
  - Tendonitis [Unknown]
  - Procedural pain [Unknown]
  - Pain in extremity [Unknown]
  - Infusion site erythema [Unknown]
  - Infusion site swelling [Unknown]
  - Infusion site pruritus [Unknown]
